FAERS Safety Report 15404423 (Version 1)
Quarter: 2018Q3

REPORT INFORMATION
  Report Type: Report from Study
  Country: CA (occurrence: CA)
  Receive Date: 20180919
  Receipt Date: 20180919
  Transmission Date: 20181010
  Serious: Yes (Other)
  Sender: FDA-Public Use
  Company Number: CA-SHIRE-CA201835256

PATIENT

DRUGS (3)
  1. HUMAN NORMAL IMMUNOGLOBULIN; LIQUID 20 [Suspect]
     Active Substance: HUMAN IMMUNOGLOBULIN G
     Dosage: 10 G, 1X/WEEK
     Route: 065
     Dates: start: 20180904
  2. GAMMAGARD LIQUID [Concomitant]
     Active Substance: HUMAN IMMUNOGLOBULIN G
     Indication: PRODUCT USED FOR UNKNOWN INDICATION
  3. HUMAN NORMAL IMMUNOGLOBULIN; LIQUID 20 [Suspect]
     Active Substance: HUMAN IMMUNOGLOBULIN G
     Indication: PRIMARY IMMUNODEFICIENCY SYNDROME
     Dosage: 40 G, 2X A WEEK
     Route: 058
     Dates: start: 20180711

REACTIONS (8)
  - Nausea [Unknown]
  - Vomiting [Unknown]
  - Kidney infection [Unknown]
  - Infusion site pruritus [Unknown]
  - Urinary tract infection [Unknown]
  - Headache [Unknown]
  - Anxiety [Unknown]
  - Incorrect dose administered [Unknown]
